FAERS Safety Report 16949175 (Version 1)
Quarter: 2019Q4

REPORT INFORMATION
  Report Type: Report from Study
  Country: None (occurrence: US)
  Receive Date: 20191023
  Receipt Date: 20191023
  Transmission Date: 20200122
  Serious: Yes (Other)
  Sender: FDA-Public Use
  Company Number: US-ABBVIE-19K-163-2973402-00

PATIENT
  Age: 58 Year
  Sex: Female

DRUGS (2)
  1. HUMIRA [Suspect]
     Active Substance: ADALIMUMAB
     Dosage: INJECT 40MG UNDER SKIN
     Route: 058
     Dates: start: 201907
  2. HUMIRA [Suspect]
     Active Substance: ADALIMUMAB
     Indication: CROHN^S DISEASE
     Dosage: INJECT 40MG UNDER SKIN
     Route: 058
     Dates: start: 20180306, end: 2019

REACTIONS (5)
  - Ileostomy [Unknown]
  - Crohn^s disease [Unknown]
  - Post procedural infection [Unknown]
  - Diarrhoea [Unknown]
  - Hernia [Unknown]

NARRATIVE: CASE EVENT DATE: 2019
